FAERS Safety Report 8799595 (Version 2)
Quarter: 2013Q1

REPORT INFORMATION
  Report Type: Spontaneous
  Country: DE (occurrence: None)
  Receive Date: 20120914
  Receipt Date: 20121113
  Transmission Date: 20140127
  Serious: Yes (Hospitalization, Other)
  Sender: FDA-Public Use
  Company Number: DE-009332

PATIENT
  Age: 10 Year
  Sex: Male
  Weight: 26.7 kg

DRUGS (1)
  1. ZOMACTON [Suspect]
     Indication: GROWTH HORMONE DEFICIENCY
     Route: 058
     Dates: start: 201111

REACTIONS (1)
  - Type 1 diabetes mellitus [None]
